FAERS Safety Report 14193888 (Version 1)
Quarter: 2017Q4

REPORT INFORMATION
  Report Type: Spontaneous
  Country: FR (occurrence: FR)
  Receive Date: 20171116
  Receipt Date: 20171116
  Transmission Date: 20180321
  Serious: Yes (Disabling)
  Sender: FDA-Public Use
  Company Number: FR-MERCK KGAA-2034220

PATIENT
  Age: 47 Year
  Sex: Female

DRUGS (2)
  1. NOVOTHYROX [Suspect]
     Active Substance: LEVOTHYROXINE SODIUM
     Dates: start: 20170610
  2. NOVOTHYROX [Suspect]
     Active Substance: LEVOTHYROXINE SODIUM
     Indication: HYPOTHYROIDISM
     Dates: start: 20170610

REACTIONS (7)
  - Vertigo [Recovering/Resolving]
  - Feeling abnormal [None]
  - Alopecia [None]
  - Blindness [None]
  - Depressed mood [None]
  - Speech disorder [None]
  - Amnesia [None]

NARRATIVE: CASE EVENT DATE: 2017
